FAERS Safety Report 24540801 (Version 1)
Quarter: 2024Q4

REPORT INFORMATION
  Report Type: Spontaneous
  Country: RO (occurrence: RO)
  Receive Date: 20241023
  Receipt Date: 20241023
  Transmission Date: 20250115
  Serious: Yes (Other)
  Sender: AMGEN
  Company Number: RO-AMGEN-ROUSP2024207529

PATIENT
  Age: 53 Year
  Sex: Male

DRUGS (7)
  1. VECTIBIX [Suspect]
     Active Substance: PANITUMUMAB
     Indication: Colorectal cancer metastatic
     Dosage: 6 MILLIGRAM/KILOGRAM
     Route: 040
     Dates: start: 20230214, end: 20230606
  2. VECTIBIX [Suspect]
     Active Substance: PANITUMUMAB
     Dosage: 6 MILLIGRAM/KILOGRAM, Q2WK
     Route: 040
     Dates: start: 20230801
  3. LEUCOVORIN [Suspect]
     Active Substance: LEUCOVORIN\LEUCOVORIN CALCIUM
     Indication: Colorectal cancer metastatic
     Dosage: UNK UNK, Q2WK
     Route: 040
     Dates: start: 20230214
  4. LEUCOVORIN [Suspect]
     Active Substance: LEUCOVORIN\LEUCOVORIN CALCIUM
     Dosage: UNK UNK, Q2WK
     Route: 040
     Dates: start: 20230801
  5. FLUOROURACIL [Suspect]
     Active Substance: FLUOROURACIL
     Indication: Colorectal cancer metastatic
     Dosage: UNK UNK, Q2WK
     Route: 040
     Dates: start: 20230214
  6. FLUOROURACIL [Suspect]
     Active Substance: FLUOROURACIL
     Dosage: UNK UNK, Q2WK
     Route: 040
     Dates: start: 20230801
  7. OXALIPLATIN [Suspect]
     Active Substance: OXALIPLATIN
     Indication: Colorectal cancer metastatic
     Dosage: UNK UNK, Q2WK
     Route: 040
     Dates: start: 20230214, end: 20230606

REACTIONS (2)
  - Metastases to liver [Unknown]
  - Rash [Unknown]

NARRATIVE: CASE EVENT DATE: 20231012
